FAERS Safety Report 18900838 (Version 3)
Quarter: 2021Q2

REPORT INFORMATION
  Report Type: Spontaneous
  Country: US (occurrence: US)
  Receive Date: 20210217
  Receipt Date: 20210402
  Transmission Date: 20210717
  Serious: Yes (Other)
  Sender: FDA-Public Use
  Company Number: US-LUPIN PHARMACEUTICALS INC.-2021-01657

PATIENT
  Age: 68 Year
  Sex: Female
  Weight: 71.66 kg

DRUGS (3)
  1. LISINOPRIL TABLETS USP, 5MG [Suspect]
     Active Substance: LISINOPRIL
     Indication: HYPERTENSION
     Dosage: 5 MILLIGRAM, QD
     Route: 048
     Dates: start: 20201222
  2. LISINOPRIL TABLETS USP, 5MG [Suspect]
     Active Substance: LISINOPRIL
     Dosage: UNK (DOUBLE THE DOSE)
     Route: 048
  3. TYLENOL [Concomitant]
     Active Substance: ACETAMINOPHEN
     Indication: PAIN
     Dosage: 0.5 DOSAGE FORM
     Route: 065

REACTIONS (7)
  - Product substitution issue [Unknown]
  - Blood pressure systolic increased [Recovered/Resolved]
  - Migraine [Unknown]
  - Drug ineffective [Unknown]
  - Product quality issue [Unknown]
  - Headache [Unknown]
  - Blood pressure increased [Recovered/Resolved]

NARRATIVE: CASE EVENT DATE: 20201222
